FAERS Safety Report 14657555 (Version 1)
Quarter: 2018Q1

REPORT INFORMATION
  Report Type: Report from Study
  Country: CN (occurrence: CN)
  Receive Date: 20180320
  Receipt Date: 20180320
  Transmission Date: 20180509
  Serious: Yes (Other)
  Sender: FDA-Public Use
  Company Number: CN-ROCHE-2088912

PATIENT

DRUGS (5)
  1. METHOTREXATE. [Suspect]
     Active Substance: METHOTREXATE
     Indication: CENTRAL NERVOUS SYSTEM LYMPHOMA
     Dosage: 3 G/M2 METHOTREXATE ON DAY 1 (24-H INFUSION ON DAY 1 WITH FOLINIC ACID RESCUE)
     Route: 065
  2. RITUXIMAB. [Suspect]
     Active Substance: RITUXIMAB
     Indication: CENTRAL NERVOUS SYSTEM LYMPHOMA
     Dosage: ON DAY 0
     Route: 042
  3. METHOTREXATE. [Suspect]
     Active Substance: METHOTREXATE
     Dosage: 15 MG DEXAMETHASONE ON DAYS 1-5.
     Route: 065
  4. TEMOZOLOMIDE. [Suspect]
     Active Substance: TEMOZOLOMIDE
     Indication: CENTRAL NERVOUS SYSTEM LYMPHOMA
     Dosage: 150 MG/M2 TEMOZOLOMIDE ON DAYS 1-5 FOR THE FIRST CYCLE AND 200 MG/M2 TEMOZOLOMIDE ON DAYS 1-5 BEGINN
     Route: 037
  5. DEXAMETHASONE. [Suspect]
     Active Substance: DEXAMETHASONE
     Indication: CENTRAL NERVOUS SYSTEM LYMPHOMA
     Route: 037

REACTIONS (10)
  - Mucosal inflammation [Unknown]
  - Blood bilirubin abnormal [Unknown]
  - Vomiting [Unknown]
  - Nausea [Unknown]
  - Haemoglobin abnormal [Unknown]
  - Hepatotoxicity [Unknown]
  - Platelet disorder [Unknown]
  - Fatigue [Unknown]
  - White blood cell count decreased [Unknown]
  - Transaminases increased [Unknown]
